FAERS Safety Report 8780279 (Version 1)
Quarter: 2012Q4

REPORT INFORMATION
  Report Type: Spontaneous
  Country: US (occurrence: None)
  Receive Date: 20120905
  Receipt Date: 20120905
  Transmission Date: 20130627
  Serious: Yes (Hospitalization)
  Sender: FDA-Public Use
  Company Number: None

PATIENT
  Age: 75 Year
  Sex: Female
  Weight: 85.73 kg

DRUGS (2)
  1. LIPITOR [Suspect]
     Indication: HIGH CHOLESTEROL
     Dosage: 1 tab   1 at supper
     Dates: start: 2006, end: 2011
  2. CELEBREX 40 MG [Suspect]
     Indication: HIGH CHOLESTEROL
     Dosage: 1 tab 1 at supper
     Dates: start: 201201

REACTIONS (7)
  - Headache [None]
  - Ear discomfort [None]
  - Gait disturbance [None]
  - Gait disturbance [None]
  - Abdominal pain upper [None]
  - Nausea [None]
  - Vertigo [None]
